FAERS Safety Report 19648094 (Version 1)
Quarter: 2021Q3

REPORT INFORMATION
  Report Type: Spontaneous
  Country: BE (occurrence: BE)
  Receive Date: 20210803
  Receipt Date: 20210803
  Transmission Date: 20211014
  Serious: Yes (Hospitalization)
  Sender: FDA-Public Use
  Company Number: BE-RK PHARMA, INC-20210700010

PATIENT

DRUGS (7)
  1. METHYLPREDNISOLONE. [Concomitant]
     Active Substance: METHYLPREDNISOLONE
     Dosage: 540 MILLIGRAM
  2. MYCOPHENOLIC ACID DR UNSPECIFIED [Suspect]
     Active Substance: MYCOPHENOLIC ACID
  3. TACROLIMUS. [Concomitant]
     Active Substance: TACROLIMUS
  4. SULFAMETHOXAZOLE AND TRIMETHOPRIM [Concomitant]
     Active Substance: SULFAMETHOXAZOLE\TRIMETHOPRIM
  5. METHYLPREDNISOLONE. [Concomitant]
     Active Substance: METHYLPREDNISOLONE
     Dosage: DOSE  REDUCED FROM 8 MG TO 4 MG PER DAY.
  6. DYDROGESTERONE;ESTRADIOL [Concomitant]
  7. METHYLPREDNISOLONE. [Concomitant]
     Active Substance: METHYLPREDNISOLONE
     Dosage: TEMPORARILY INCREASED TO 16 MG PER DAY

REACTIONS (4)
  - Fatigue [Recovered/Resolved]
  - Hypertriglyceridaemia [Recovered/Resolved]
  - Diarrhoea [Recovered/Resolved]
  - Headache [Recovered/Resolved]
